FAERS Safety Report 5388467-6 (Version None)
Quarter: 2007Q3

REPORT INFORMATION
  Report Type: 
  Country: None (occurrence: None)
  Receive Date: 20070716
  Receipt Date: 20070709
  Transmission Date: 20080115
  Serious: Yes (Hospitalization)
  Sender: FDA-Public Use
  Company Number: GB-ROCHE-506726

PATIENT
  Age: 55 Year
  Sex: Female
  Weight: 89.8 kg

DRUGS (4)
  1. XENICAL [Suspect]
     Indication: OBESITY
     Route: 048
     Dates: start: 20061227
  2. SIMVASTATIN [Concomitant]
     Route: 048
     Dates: start: 20040101
  3. FLUOXETINE [Concomitant]
     Indication: DEPRESSION
     Route: 048
  4. HRT [Concomitant]

REACTIONS (2)
  - HYPOTENSION [None]
  - LOSS OF CONSCIOUSNESS [None]
